FAERS Safety Report 17988242 (Version 2)
Quarter: 2020Q3

REPORT INFORMATION
  Report Type: Report from Study
  Country: GB (occurrence: GB)
  Receive Date: 20200707
  Receipt Date: 20200728
  Transmission Date: 20201103
  Serious: Yes (Hospitalization)
  Sender: FDA-Public Use
  Company Number: NVSC2020GB188320

PATIENT
  Age: 49 Year
  Sex: Female

DRUGS (4)
  1. BLINDED NO TREATMENT RECEIVED [Suspect]
     Active Substance: INVESTIGATIONAL PRODUCT
     Indication: HEPATITIS ALCOHOLIC
     Dosage: CODE NOT BROKEN
     Route: 042
     Dates: start: 20190726, end: 20190726
  2. BLINDED ACZ885 [Suspect]
     Active Substance: CANAKINUMAB
     Indication: HEPATITIS ALCOHOLIC
     Dosage: CODE NOT BROKEN
     Route: 042
     Dates: start: 20190726, end: 20190726
  3. BLINDED ACZ885 [Suspect]
     Active Substance: CANAKINUMAB
     Indication: HEPATITIS ALCOHOLIC
     Dosage: CODE NOT BROKEN
     Route: 042
     Dates: start: 20190726, end: 20190726
  4. PLACEBO [Suspect]
     Active Substance: UNSPECIFIED INGREDIENT
     Indication: HEPATITIS ALCOHOLIC
     Dosage: CODE NOT BROKEN
     Route: 042
     Dates: start: 20190726, end: 20190726

REACTIONS (2)
  - Electrolyte imbalance [Recovered/Resolved]
  - Ascites [Recovered/Resolved]

NARRATIVE: CASE EVENT DATE: 20190827
